FAERS Safety Report 25998760 (Version 1)
Quarter: 2025Q4

REPORT INFORMATION
  Report Type: Report from Study
  Country: GB (occurrence: GB)
  Receive Date: 20251105
  Receipt Date: 20251105
  Transmission Date: 20260118
  Serious: Yes (Hospitalization, Other)
  Sender: ALEXION PHARMACEUTICALS
  Company Number: GB-AstraZeneca-CH-00984779A

PATIENT
  Age: 69 Year
  Sex: Male

DRUGS (1)
  1. ULTOMIRIS [Suspect]
     Active Substance: RAVULIZUMAB-CWVZ
     Indication: Paroxysmal nocturnal haemoglobinuria
     Dosage: 3300 MILLIGRAM

REACTIONS (9)
  - Urinary tract infection [Unknown]
  - Acute kidney injury [Unknown]
  - Malaise [Unknown]
  - Joint dislocation [Unknown]
  - Dysphagia [Unknown]
  - SARS-CoV-2 antibody test positive [Unknown]
  - Confusional state [Unknown]
  - Fall [Unknown]
  - Haematuria [Unknown]
